FAERS Safety Report 22008877 (Version 1)
Quarter: 2023Q1

REPORT INFORMATION
  Report Type: Report from Study
  Country: CA (occurrence: CA)
  Receive Date: 20230220
  Receipt Date: 20230220
  Transmission Date: 20230417
  Serious: Yes (Other)
  Sender: FDA-Public Use
  Company Number: CA-BEH-2022148069

PATIENT
  Age: 41 Year
  Sex: Female
  Weight: 81 kg

DRUGS (1)
  1. HIZENTRA [Suspect]
     Active Substance: HUMAN IMMUNOGLOBULIN G
     Indication: Secondary immunodeficiency
     Dosage: 10 GRAM, BIW
     Route: 065
     Dates: start: 20220122, end: 202208

REACTIONS (8)
  - Infusion site mass [Unknown]
  - Infusion site bruising [Unknown]
  - Infusion site induration [Unknown]
  - Peripheral swelling [Unknown]
  - Injection site pain [Unknown]
  - Injection site swelling [Unknown]
  - Condition aggravated [Unknown]
  - Product prescribing issue [Unknown]
